FAERS Safety Report 18347464 (Version 1)
Quarter: 2020Q4

REPORT INFORMATION
  Report Type: Spontaneous
  Country: US (occurrence: US)
  Receive Date: 20201006
  Receipt Date: 20201006
  Transmission Date: 20210114
  Serious: No
  Sender: FDA-Public Use
  Company Number: US-MICRO LABS LIMITED-ML2020-02090

PATIENT
  Sex: Male

DRUGS (3)
  1. DALFAMPRIDINE EXTENDED-RELEASE TABLETS, 10 MG [Suspect]
     Active Substance: DALFAMPRIDINE
     Indication: GAIT DISTURBANCE
     Dosage: BID
     Route: 048
  2. TECFIDERA [Suspect]
     Active Substance: DIMETHYL FUMARATE
     Indication: MULTIPLE SCLEROSIS
     Dosage: BID
     Route: 048
     Dates: start: 20150529
  3. DALFAMPRIDINE EXTENDED-RELEASE TABLETS, 10 MG [Suspect]
     Active Substance: DALFAMPRIDINE
     Indication: PAIN IN EXTREMITY

REACTIONS (8)
  - Multiple sclerosis [Unknown]
  - Fall [Unknown]
  - Pain in extremity [Unknown]
  - Arthritis [Unknown]
  - Onychomycosis [Unknown]
  - Asthenia [Unknown]
  - White blood cell count decreased [Unknown]
  - Depressed mood [Unknown]
